FAERS Safety Report 15383444 (Version 1)
Quarter: 2018Q3

REPORT INFORMATION
  Report Type: Spontaneous
  Country: US (occurrence: US)
  Receive Date: 20180913
  Receipt Date: 20180913
  Transmission Date: 20181010
  Serious: Yes (Hospitalization)
  Sender: FDA-Public Use
  Company Number: US-SHIRE-US201834709

PATIENT
  Sex: Female

DRUGS (1)
  1. GATTEX [Suspect]
     Active Substance: TEDUGLUTIDE\WATER
     Indication: SHORT-BOWEL SYNDROME
     Dosage: 0.21 UNKNOWN UNITS
     Route: 065
     Dates: start: 20170901

REACTIONS (3)
  - Inappropriate schedule of drug administration [Unknown]
  - Abdominal adhesions [Unknown]
  - Abdominal pain [Unknown]
